FAERS Safety Report 6373298-0 (Version None)
Quarter: 2009Q3

REPORT INFORMATION
  Report Type: 
  Country: None (occurrence: None)
  Receive Date: 20090924
  Receipt Date: 20090616
  Transmission Date: 20100115
  Serious: Yes (Other)
  Sender: FDA-Public Use
  Company Number: US-ASTRAZENECA-2009UW09174

PATIENT
  Age: 32 Year
  Sex: Male

DRUGS (3)
  1. SEROQUEL [Suspect]
     Indication: BIPOLAR DISORDER
     Route: 048
     Dates: start: 20030101, end: 20050101
  2. RISPERDAL [Concomitant]
     Dates: start: 20020101, end: 20030101
  3. ZYPREXA [Concomitant]
     Dates: start: 20070201

REACTIONS (1)
  - PANCREATITIS ACUTE [None]
